FAERS Safety Report 4755622-5 (Version None)
Quarter: 2005Q3

REPORT INFORMATION
  Report Type: 
  Country: None (occurrence: None)
  Receive Date: 20050830
  Receipt Date: 20050606
  Transmission Date: 20060218
  Serious: No
  Sender: FDA-Public Use
  Company Number: US-BRISTOL-MYERS SQUIBB COMPANY-12993853

PATIENT
  Age: 71 Year
  Sex: Female
  Weight: 65 kg

DRUGS (3)
  1. ABILIFY [Suspect]
     Dates: start: 20050605
  2. HYZAAR [Concomitant]
  3. SULAR [Concomitant]

REACTIONS (3)
  - EATING DISORDER [None]
  - MALAISE [None]
  - NAUSEA [None]
